FAERS Safety Report 18464229 (Version 1)
Quarter: 2020Q4

REPORT INFORMATION
  Report Type: Spontaneous
  Country: US (occurrence: US)
  Receive Date: 20201104
  Receipt Date: 20201104
  Transmission Date: 20210114
  Serious: No
  Sender: FDA-Public Use
  Company Number: US-TEVA-2020-US-1844633

PATIENT
  Age: 58 Year
  Sex: Female

DRUGS (4)
  1. PROAIR HFA [Suspect]
     Active Substance: ALBUTEROL SULFATE
  2. PROAIR HFA [Suspect]
     Active Substance: ALBUTEROL SULFATE
  3. PROAIR HFA [Suspect]
     Active Substance: ALBUTEROL SULFATE
  4. PROAIR HFA [Suspect]
     Active Substance: ALBUTEROL SULFATE
     Route: 065

REACTIONS (2)
  - Malaise [Unknown]
  - Illness [Unknown]
